FAERS Safety Report 4681824-2 (Version None)
Quarter: 2005Q2

REPORT INFORMATION
  Report Type: 
  Country: None (occurrence: None)
  Receive Date: 20050602
  Receipt Date: 20050524
  Transmission Date: 20051028
  Serious: Yes (Life-Threatening, Hospitalization)
  Sender: FDA-Public Use
  Company Number: 2005-05-1631

PATIENT
  Age: 68 Year
  Sex: Male

DRUGS (3)
  1. PEG-INTRON [Suspect]
     Indication: HEPATITIS C
     Dosage: 40 MCG QW, SUBCUTANEOUS
     Route: 058
     Dates: start: 20050322, end: 20050504
  2. REBETOL [Suspect]
     Indication: HEPATITIS C
     Dosage: 400 MG ORAL
     Route: 048
     Dates: start: 20050307, end: 20050314
  3. INTRON A [Suspect]
     Indication: HEPATITIS C
     Dosage: 3 MIU INTRAMUSCULAR
     Route: 030
     Dates: start: 20050307, end: 20050321

REACTIONS (6)
  - ANAEMIA [None]
  - CARDIAC TAMPONADE [None]
  - HAEMORRHAGE [None]
  - MALAISE [None]
  - MYOCARDIAL INFARCTION [None]
  - PALPITATIONS [None]
